FAERS Safety Report 12741670 (Version 3)
Quarter: 2016Q4

REPORT INFORMATION
  Report Type: Spontaneous
  Country: JP (occurrence: JP)
  Receive Date: 20160914
  Receipt Date: 20161031
  Transmission Date: 20170207
  Serious: Yes (Disabling)
  Sender: FDA-Public Use
  Company Number: JP-AMGEN-JPNSP2016122623

PATIENT
  Age: 66 Year
  Sex: Female
  Weight: 51 kg

DRUGS (28)
  1. GASTER [Concomitant]
     Active Substance: FAMOTIDINE
     Indication: BREAST CANCER
     Dosage: 20 MG, QD
     Route: 041
     Dates: start: 20080829, end: 20080929
  2. PRIMPERAN [Concomitant]
     Active Substance: METOCLOPRAMIDE HYDROCHLORIDE
     Indication: BREAST CANCER
     Dosage: 5 MG, TID
     Route: 065
     Dates: start: 20160706
  3. ZOMETA [Suspect]
     Active Substance: ZOLEDRONIC ACID
     Indication: METASTASES TO BONE
     Dosage: 4 MG, QD
     Route: 065
     Dates: start: 20090722, end: 20120907
  4. FARMORUBICIN [Concomitant]
     Active Substance: EPIRUBICIN HYDROCHLORIDE
     Indication: BREAST CANCER
     Dosage: 110 MG, QD
     Route: 041
     Dates: start: 20081128, end: 20090116
  5. ENDOXAN [Concomitant]
     Active Substance: CYCLOPHOSPHAMIDE
     Indication: BREAST CANCER
     Dosage: 870 MG, QD
     Route: 041
     Dates: start: 20081128, end: 20090116
  6. LOXONIN [Concomitant]
     Active Substance: LOXOPROFEN SODIUM
     Indication: BREAST CANCER
     Dosage: 60 MG, QD
     Route: 065
     Dates: start: 20160330, end: 20160330
  7. NASEA [Concomitant]
     Active Substance: RAMOSETRON HYDROCHLORIDE
     Indication: BREAST CANCER
     Dosage: 0.1 MG, QD
     Route: 065
     Dates: start: 20160330
  8. RANMARK [Suspect]
     Active Substance: DENOSUMAB
     Indication: METASTASES TO BONE
     Dosage: 120 MG, 34 TIMES
     Route: 058
     Dates: start: 20121005, end: 20150701
  9. DECADRON [Concomitant]
     Active Substance: DEXAMETHASONE
     Indication: BREAST CANCER
     Dosage: 24 MG, QD
     Route: 041
     Dates: start: 20080829, end: 20090116
  10. LASIX [Concomitant]
     Active Substance: FUROSEMIDE
     Indication: BREAST CANCER
     Dosage: 40 MG, QD
     Route: 065
     Dates: start: 20160706
  11. ACTONEL [Suspect]
     Active Substance: RISEDRONATE SODIUM
     Indication: BREAST CANCER
     Dosage: 17.5 MG, QD
     Route: 065
     Dates: start: 20110826, end: 20130712
  12. PACLITAXEL. [Concomitant]
     Active Substance: PACLITAXEL
     Indication: BREAST CANCER
     Dosage: 130 MG, QD
     Route: 041
     Dates: start: 20080829, end: 20160330
  13. POLARAMINE [Concomitant]
     Active Substance: DEXCHLORPHENIRAMINE MALEATE
     Indication: BREAST CANCER
     Dosage: 5 MG, QD
     Route: 065
     Dates: start: 20160330
  14. RECOMODULIN [Concomitant]
     Active Substance: THROMBOMODULIN ALFA
     Indication: BREAST CANCER
     Dosage: 19200 UNIT, QD
     Route: 065
     Dates: start: 20160713
  15. FASLODEX [Concomitant]
     Active Substance: FULVESTRANT
     Indication: BREAST CANCER
     Dosage: 1 G, QD
     Route: 065
     Dates: start: 20140324, end: 20151130
  16. HALAVEN [Concomitant]
     Active Substance: ERIBULIN MESYLATE
     Indication: BREAST CANCER
     Dosage: 2 MG, QD
     Route: 065
     Dates: start: 20151214, end: 20160316
  17. GLYCYRON [Concomitant]
     Active Substance: AMMONIUM GLYCYRRHIZATE\GLYCINE\METHIONINE
     Indication: BREAST CANCER
     Dosage: UNK
     Route: 065
  18. NEUTROGIN [Concomitant]
     Active Substance: LENOGRASTIM
     Indication: BREAST CANCER
     Dosage: 100 MUG, QD
     Route: 065
     Dates: start: 20160713
  19. 5-FU [Concomitant]
     Active Substance: FLUOROURACIL
     Indication: BREAST CANCER
     Dosage: 870 MG, QD
     Route: 041
     Dates: start: 20081128, end: 20090116
  20. XELODA [Concomitant]
     Active Substance: CAPECITABINE
     Indication: BREAST CANCER
     Dosage: 1200 MG, BID
     Route: 048
     Dates: start: 20090213, end: 20140323
  21. PYDOXAL [Concomitant]
     Active Substance: PYRIDOXAL
     Indication: BREAST CANCER
     Dosage: 20 MG, TID
     Route: 065
     Dates: start: 20110204, end: 20140615
  22. DEXART [Concomitant]
     Active Substance: DEXAMETHASONE SODIUM PHOSPHATE
     Indication: BREAST CANCER
     Dosage: 3.3 MG, QD
     Route: 065
     Dates: start: 20151214, end: 20160330
  23. AVASTIN [Concomitant]
     Active Substance: BEVACIZUMAB
     Indication: BREAST CANCER
     Dosage: 481 MG, QD
     Route: 065
     Dates: start: 20160330
  24. KYTRIL [Concomitant]
     Active Substance: GRANISETRON HYDROCHLORIDE
     Indication: BREAST CANCER
     Dosage: 3 MG, QD
     Route: 041
     Dates: start: 20080829, end: 20080929
  25. GRANISETRON [Concomitant]
     Active Substance: GRANISETRON
     Indication: BREAST CANCER
     Dosage: 3 MG, QD
     Route: 041
     Dates: start: 20081128, end: 20090116
  26. FEMARA [Concomitant]
     Active Substance: LETROZOLE
     Indication: BREAST CANCER
     Dosage: 2.5 MG, QD
     Route: 048
     Dates: start: 20090213, end: 20140323
  27. ONEALFA [Concomitant]
     Active Substance: ALFACALCIDOL
     Indication: BREAST CANCER
     Dosage: 1 MUG, QD
     Route: 065
     Dates: start: 20100813, end: 20151129
  28. URSO [Concomitant]
     Active Substance: URSODIOL
     Indication: BREAST CANCER
     Dosage: 100 MG, TID
     Route: 065
     Dates: start: 20160620

REACTIONS (1)
  - Osteonecrosis of jaw [Not Recovered/Not Resolved]

NARRATIVE: CASE EVENT DATE: 20150730
